FAERS Safety Report 23167408 (Version 3)
Quarter: 2024Q2

REPORT INFORMATION
  Report Type: Spontaneous
  Country: US (occurrence: US)
  Receive Date: 20231109
  Receipt Date: 20240621
  Transmission Date: 20240716
  Serious: Yes (Hospitalization)
  Sender: FDA-Public Use
  Company Number: US-PARATEK PHARMACEUTICALS, INC.-2023PTK00360

PATIENT
  Sex: Female
  Weight: 48.98 kg

DRUGS (7)
  1. NUZYRA [Suspect]
     Active Substance: OMADACYCLINE
     Indication: Mycobacterium abscessus infection
     Dosage: 300 MG, 1X/DAY
     Route: 048
     Dates: start: 20230701, end: 2023
  2. NUZYRA [Suspect]
     Active Substance: OMADACYCLINE
     Dosage: 150 MG, 1X/DAY
     Route: 048
     Dates: start: 2023, end: 2023
  3. NUZYRA [Suspect]
     Active Substance: OMADACYCLINE
     Dosage: 300 MG, 1X/DAY
     Route: 048
     Dates: start: 2023, end: 2023
  4. NUZYRA [Suspect]
     Active Substance: OMADACYCLINE
     Dosage: 150 MG, 1X/DAY
     Route: 048
     Dates: start: 2023
  5. NUZYRA [Suspect]
     Active Substance: OMADACYCLINE
     Dosage: 300 MG, 1X/DAY
     Route: 048
  6. CLOFAZIMINE [Concomitant]
     Active Substance: CLOFAZIMINE
  7. METOPROLOL [Concomitant]
     Active Substance: METOPROLOL

REACTIONS (10)
  - Hospitalisation [Unknown]
  - Palpitations [Recovered/Resolved]
  - Malaise [Unknown]
  - Nausea [Unknown]
  - Vomiting [Unknown]
  - Diarrhoea [Unknown]
  - Abdominal discomfort [Unknown]
  - Intentional product use issue [Unknown]
  - Off label use [Unknown]
  - Incorrect product administration duration [Unknown]

NARRATIVE: CASE EVENT DATE: 20230101
